FAERS Safety Report 25826481 (Version 1)
Quarter: 2025Q3

REPORT INFORMATION
  Report Type: Report from Study
  Country: US (occurrence: US)
  Receive Date: 20250920
  Receipt Date: 20250920
  Transmission Date: 20251021
  Serious: Yes (Other)
  Sender: ABBVIE
  Company Number: US-ABBVIE-6463813

PATIENT
  Age: 52 Year
  Sex: Female

DRUGS (1)
  1. RINVOQ [Suspect]
     Active Substance: UPADACITINIB
     Indication: Psoriatic arthropathy
     Dosage: STRENGTH: 15MG?RINVOQ ER
     Route: 048
     Dates: start: 20250819

REACTIONS (8)
  - Neoplasm [Unknown]
  - Ear discomfort [Recovered/Resolved]
  - Vision blurred [Recovered/Resolved]
  - Pain in extremity [Not Recovered/Not Resolved]
  - Gait inability [Recovered/Resolved]
  - Pain [Unknown]
  - Dizziness [Recovered/Resolved]
  - Pharyngitis streptococcal [Recovered/Resolved]

NARRATIVE: CASE EVENT DATE: 20250101
